FAERS Safety Report 7002231-3 (Version None)
Quarter: 2010Q3

REPORT INFORMATION
  Report Type: 
  Country: None (occurrence: None)
  Receive Date: 20100920
  Receipt Date: 20070525
  Transmission Date: 20110219
  Serious: Yes (Hospitalization)
  Sender: FDA-Public Use
  Company Number: US-ASTRAZENECA-2006UW24125

PATIENT
  Age: 21203 Day
  Sex: Female
  Weight: 88.5 kg

DRUGS (21)
  1. SEROQUEL [Suspect]
     Indication: DEPRESSION
     Dosage: 100 MG - 900 MG
     Route: 048
     Dates: start: 20000830
  2. SEROQUEL [Suspect]
     Indication: BIPOLAR DISORDER
     Dosage: 100 MG - 900 MG
     Route: 048
     Dates: start: 20000830
  3. SEROQUEL [Suspect]
     Indication: SLEEP DISORDER
     Dosage: 100 MG - 900 MG
     Route: 048
     Dates: start: 20000830
  4. SEROQUEL [Suspect]
     Dosage: 100 MG-200 MG
     Route: 048
     Dates: start: 20050101
  5. SEROQUEL [Suspect]
     Dosage: 100 MG-200 MG
     Route: 048
     Dates: start: 20050101
  6. SEROQUEL [Suspect]
     Dosage: 100 MG-200 MG
     Route: 048
     Dates: start: 20050101
  7. SEROQUEL [Suspect]
     Dosage: 200 MG-300 MG
     Route: 048
     Dates: end: 20050101
  8. SEROQUEL [Suspect]
     Dosage: 200 MG-300 MG
     Route: 048
     Dates: end: 20050101
  9. SEROQUEL [Suspect]
     Dosage: 200 MG-300 MG
     Route: 048
     Dates: end: 20050101
  10. ABILIFY [Suspect]
     Dates: start: 20030201, end: 20030401
  11. LITHIUM [Suspect]
     Dates: start: 20060101
  12. RISPERDAL [Suspect]
     Dosage: STRENGTH - 2 MG, 3 MG   DOSE - 2 MG-3 MG DAILY
     Dates: start: 20050913
  13. RISPERDAL [Suspect]
     Dosage: 2 MG-3 MG
     Dates: start: 20051101, end: 20060301
  14. EFFEXOR XR [Suspect]
     Dates: start: 20060101
  15. EFFEXOR XR [Suspect]
     Dosage: STRENGTH - 37.5 MG, 75 MG  DOSE - 37.5 MG - 75 MG DAILY
     Route: 048
  16. GEODON [Suspect]
     Dosage: 20 MG - 80 MG
     Dates: start: 20010101, end: 20020101
  17. ZYPREXA [Concomitant]
  18. PREVACID [Concomitant]
     Indication: GASTROOESOPHAGEAL REFLUX DISEASE
     Dosage: STRENGTH - 15 MG, 30 MG  DOSE - 15-30 MG DAILY
     Route: 048
     Dates: start: 20010411
  19. CYMBALTA [Concomitant]
     Dosage: STRENGTH - 20 MG, 30 MG, 60 MG  DOSE - 20 MG - 60 MG DAILY
  20. LIPITOR [Concomitant]
  21. PRILOSEC [Concomitant]
     Route: 048

REACTIONS (6)
  - BLOOD CHOLESTEROL INCREASED [None]
  - DEPRESSION [None]
  - DIABETES MELLITUS [None]
  - HYPERCHOLESTEROLAEMIA [None]
  - HYPERGLYCAEMIA [None]
  - TYPE 2 DIABETES MELLITUS [None]
